FAERS Safety Report 6041575-9 (Version None)
Quarter: 2009Q1

REPORT INFORMATION
  Report Type: 
  Country: None (occurrence: None)
  Receive Date: 20090116
  Receipt Date: 20090113
  Transmission Date: 20090719
  Serious: Yes (Death, Hospitalization)
  Sender: FDA-Public Use
  Company Number: A0763248A

PATIENT
  Age: 55 Year
  Sex: Female

DRUGS (7)
  1. TYKERB [Suspect]
     Indication: BREAST CANCER
     Dosage: 250MCG FIVE TIMES PER DAY
     Route: 048
     Dates: start: 20080104, end: 20080212
  2. IMODIUM [Concomitant]
  3. REGLAN [Concomitant]
  4. LEXAPRO [Concomitant]
  5. DECADRON [Concomitant]
  6. DOMPERIDONE [Concomitant]
  7. ZOFRAN [Concomitant]

REACTIONS (1)
  - DEATH [None]
